FAERS Safety Report 15104703 (Version 1)
Quarter: 2018Q3

REPORT INFORMATION
  Report Type: Spontaneous
  Country: US (occurrence: US)
  Receive Date: 20180703
  Receipt Date: 20180703
  Transmission Date: 20181010
  Serious: No
  Sender: FDA-Public Use
  Company Number: US-BAUSCH-BL-2018-003964

PATIENT
  Sex: Female

DRUGS (1)
  1. BESIVANCE [Suspect]
     Active Substance: BESIFLOXACIN
     Indication: EYE INFECTION
     Dosage: ONE DROP INTO THE RIGHT EYE
     Route: 047
     Dates: start: 20180201

REACTIONS (1)
  - Drug ineffective [Not Recovered/Not Resolved]
